FAERS Safety Report 8936850 (Version 3)
Quarter: 2013Q1

REPORT INFORMATION
  Report Type: Spontaneous
  Country: US (occurrence: US)
  Receive Date: 20121130
  Receipt Date: 20130131
  Transmission Date: 20140127
  Serious: Yes (Other)
  Sender: FDA-Public Use
  Company Number: US-PFIZER INC-2012299129

PATIENT
  Age: 57 Year
  Sex: Female
  Weight: 54.42 kg

DRUGS (9)
  1. LYRICA [Suspect]
     Indication: NEUROPATHY PERIPHERAL
     Dosage: 50 MG, 2X/DAY
     Route: 048
     Dates: start: 201210
  2. LAMICTAL [Concomitant]
     Dosage: 200 MG, 1X/DAY
  3. SEROQUEL [Concomitant]
     Dosage: 100 MG, 2X/DAY
  4. SYNTHROID [Concomitant]
     Indication: THYROID DISORDER
     Dosage: UNK
  5. AMITRIPTYLINE [Concomitant]
     Indication: DEPRESSION
     Dosage: UNK
  6. ZOLOFT [Concomitant]
     Dosage: UNK
  7. CLONAZEPAM [Concomitant]
     Indication: ANXIETY
     Dosage: UNK
  8. ENDOCET [Concomitant]
     Dosage: UNK, 2X/DAY
  9. PERCOCET [Concomitant]
     Dosage: UNK, 2X/DAY

REACTIONS (6)
  - Dysphemia [Unknown]
  - Dysgraphia [Unknown]
  - Reading disorder [Unknown]
  - Drug intolerance [Unknown]
  - Feeling abnormal [Unknown]
  - Rash [Unknown]
